FAERS Safety Report 4396174-1 (Version None)
Quarter: 2004Q3

REPORT INFORMATION
  Report Type: 
  Country: None (occurrence: None)
  Receive Date: 20040713
  Receipt Date: 20040414
  Transmission Date: 20050211
  Serious: Yes (Hospitalization, Other)
  Sender: FDA-Public Use
  Company Number: PHBS2004JP05114

PATIENT
  Age: 45 Year
  Sex: Female

DRUGS (7)
  1. TEGRETOL [Suspect]
     Indication: MENTAL RETARDATION SEVERITY UNSPECIFIED
     Route: 048
     Dates: start: 19940101, end: 20010828
  2. TEGRETOL [Suspect]
     Dosage: 300 MG/DAY
     Route: 048
     Dates: start: 20010904
  3. PHENYTOIN [Suspect]
     Indication: MENTAL RETARDATION SEVERITY UNSPECIFIED
     Dosage: 250 MG/DAY
     Route: 048
     Dates: start: 20010904, end: 20010916
  4. PHENYTOIN [Suspect]
     Dosage: 220 MG/DAY
     Route: 048
     Dates: start: 20010917, end: 20010924
  5. PHENYTOIN [Suspect]
     Dosage: 200 MG/DAY
     Route: 048
     Dates: start: 20010925, end: 20010930
  6. PHENYTOIN [Suspect]
     Dosage: 180 MG/DAY
     Route: 048
     Dates: start: 20011001, end: 20011008
  7. PHENYTOIN [Suspect]
     Dosage: 100 MG/DAY
     Route: 048
     Dates: start: 20011009, end: 20011027

REACTIONS (18)
  - BLOOD CREATINE PHOSPHOKINASE INCREASED [None]
  - BLOOD CREATININE INCREASED [None]
  - BLOOD UREA INCREASED [None]
  - C-REACTIVE PROTEIN INCREASED [None]
  - CANDIDIASIS [None]
  - CYTOMEGALOVIRUS ANTIBODY POSITIVE [None]
  - DERMATITIS EXFOLIATIVE [None]
  - ERYTHEMA [None]
  - GASTROINTESTINAL HAEMORRHAGE [None]
  - HAEMATEMESIS [None]
  - HEPATIC FUNCTION ABNORMAL [None]
  - HYPERSENSITIVITY [None]
  - NEUROLEPTIC MALIGNANT SYNDROME [None]
  - PYREXIA [None]
  - RASH [None]
  - RENAL FAILURE ACUTE [None]
  - TOXIC SKIN ERUPTION [None]
  - WHITE BLOOD CELL COUNT INCREASED [None]
